FAERS Safety Report 18638479 (Version 1)
Quarter: 2020Q4

REPORT INFORMATION
  Report Type: Spontaneous
  Country: US (occurrence: US)
  Receive Date: 20201218
  Receipt Date: 20201218
  Transmission Date: 20210114
  Serious: Yes (Death, Other)
  Sender: FDA-Public Use
  Company Number: US-REGENERON PHARMACEUTICALS, INC.-2020-95309

PATIENT

DRUGS (1)
  1. LIBTAYO [Suspect]
     Active Substance: CEMIPLIMAB-RWLC
     Indication: SQUAMOUS CELL CARCINOMA OF SKIN

REACTIONS (11)
  - Diabetes mellitus [Unknown]
  - Diarrhoea [Unknown]
  - Death [Fatal]
  - Seizure [Unknown]
  - Skin erosion [Unknown]
  - Infection [Unknown]
  - Impaired healing [Unknown]
  - Skin ulcer [Unknown]
  - Sepsis [Unknown]
  - Blister [Unknown]
  - Rash [Unknown]

NARRATIVE: CASE EVENT DATE: 20201126
